FAERS Safety Report 8491893-X (Version None)
Quarter: 2012Q3

REPORT INFORMATION
  Report Type: 
  Country: None (occurrence: None)
  Receive Date: 20120706
  Receipt Date: 20111103
  Transmission Date: 20120928
  Serious: No
  Sender: FDA-Public Use
  Company Number: US-GLAXOSMITHKLINE-A0951885A

PATIENT
  Age: 10 Year
  Sex: Female

DRUGS (2)
  1. NO CONCURRENT MEDICATION [Concomitant]
  2. FLOVENT [Suspect]
     Indication: ASTHMA
     Dosage: 1PUFF SINGLE DOSE
     Route: 055
     Dates: start: 20111024, end: 20111024

REACTIONS (4)
  - GLOSSODYNIA [None]
  - DRUG HYPERSENSITIVITY [None]
  - TONGUE ERUPTION [None]
  - THERMAL BURN [None]
